FAERS Safety Report 20750195 (Version 3)
Quarter: 2022Q2

REPORT INFORMATION
  Report Type: Spontaneous
  Country: US (occurrence: US)
  Receive Date: 20220426
  Receipt Date: 20220606
  Transmission Date: 20220721
  Serious: Yes (Other)
  Sender: FDA-Public Use
  Company Number: US-SANOFI-01074836

PATIENT
  Age: 65 Year
  Sex: Male

DRUGS (1)
  1. DUPIXENT [Suspect]
     Active Substance: DUPILUMAB
     Indication: Eczema
     Dosage: 300 MG, QOW
     Route: 058
     Dates: start: 201807, end: 202204

REACTIONS (3)
  - Hepatic cirrhosis [Unknown]
  - Jaundice [Unknown]
  - Hepatitis alcoholic [Unknown]

NARRATIVE: CASE EVENT DATE: 20220422
